FAERS Safety Report 10841296 (Version 1)
Quarter: 2015Q1

REPORT INFORMATION
  Report Type: Spontaneous
  Country: GB (occurrence: None)
  Receive Date: 20150218
  Receipt Date: 20150218
  Transmission Date: 20150721
  Serious: Yes (Life-Threatening)
  Sender: FDA-Public Use
  Company Number: 2739887

PATIENT
  Age: 55 Year
  Sex: Female

DRUGS (25)
  1. SENNA [Concomitant]
     Active Substance: SENNA LEAF\SENNOSIDES\SENNOSIDES A AND B
  2. CODEINE PHOSPHATE [Concomitant]
     Active Substance: CODEINE PHOSPHATE
  3. CHLORHEXIDINE [Concomitant]
     Active Substance: CHLORHEXIDINE
  4. TINZAPARIN [Concomitant]
     Active Substance: TINZAPARIN
  5. DOCUSATE [Concomitant]
     Active Substance: DOCUSATE
  6. PROPRANOLOL [Concomitant]
     Active Substance: PROPRANOLOL\PROPRANOLOL HYDROCHLORIDE
  7. IPRATROPIUM [Concomitant]
     Active Substance: IPRATROPIUM
  8. OLANZAPINE. [Concomitant]
     Active Substance: OLANZAPINE
  9. MORPHINE SULFATE. [Concomitant]
     Active Substance: MORPHINE SULFATE
  10. HYOSCINE HYDROBROMIDE [Concomitant]
     Active Substance: SCOPOLAMINE
  11. CARBOCISTEINE [Concomitant]
     Active Substance: CARBOCYSTEINE
  12. FOLIC ACID. [Concomitant]
     Active Substance: FOLIC ACID
  13. SALBUTAMOL [Concomitant]
     Active Substance: ALBUTEROL
  14. CARBOPLATIN. [Suspect]
     Active Substance: CARBOPLATIN
     Indication: LUNG NEOPLASM MALIGNANT
     Dosage: INTRAVENOUS (NOT OTHERWISE SPECIFIED)
     Route: 042
     Dates: start: 20141209, end: 20141209
  15. PEMETREXED DISODIUM [Suspect]
     Active Substance: PEMETREXED DISODIUM
     Indication: LUNG NEOPLASM MALIGNANT
     Dosage: INTRAVENOUS (NOT OTHERWISE SPECIFIED)
     Route: 042
     Dates: start: 20141209, end: 20141209
  16. BIOTENE DRY MOUTH [Concomitant]
  17. LANSOPROZOLE [Concomitant]
  18. NEFOPAM [Concomitant]
     Active Substance: NEFOPAM
  19. LORAZEPAM. [Concomitant]
     Active Substance: LORAZEPAM
  20. PARACETAMOL [Concomitant]
     Active Substance: ACETAMINOPHEN
  21. AMITRIPTYLINE [Concomitant]
     Active Substance: AMITRIPTYLINE
  22. PREDNISOLONE. [Concomitant]
     Active Substance: PREDNISOLONE
  23. DEXAMETHASONE. [Concomitant]
     Active Substance: DEXAMETHASONE
  24. MIDAZOLAM [Concomitant]
     Active Substance: MIDAZOLAM\MIDAZOLAM HYDROCHLORIDE
  25. METCOLOPRAMIDE [Concomitant]

REACTIONS (1)
  - Pulmonary fibrosis [None]

NARRATIVE: CASE EVENT DATE: 20141212
